FAERS Safety Report 17191831 (Version 1)
Quarter: 2019Q4

REPORT INFORMATION
  Report Type: Spontaneous
  Country: CN (occurrence: CN)
  Receive Date: 20191223
  Receipt Date: 20191223
  Transmission Date: 20200122
  Serious: Yes (Hospitalization, Other)
  Sender: FDA-Public Use
  Company Number: CN-BAYER-2019-229949

PATIENT
  Age: 15 Year
  Sex: Female

DRUGS (10)
  1. PASINIAZIDE [Concomitant]
     Active Substance: PASINIAZID
     Dosage: 0.3 G, TID
  2. PYRAZINAMIDE. [Concomitant]
     Active Substance: PYRAZINAMIDE
     Dosage: 0.75 G, BID
  3. PROTIONAMIDE [Concomitant]
     Active Substance: PROTIONAMIDE
     Indication: TUBERCULOSIS
     Dosage: 0.2 G, TID
     Dates: start: 201901
  4. RIFAMPICIN [Concomitant]
     Active Substance: RIFAMPIN
     Indication: TUBERCULOSIS
     Dosage: 0.15 UNK
  5. CAPREOMYCIN [Concomitant]
     Active Substance: CAPREOMYCIN
     Indication: TUBERCULOSIS
     Dosage: 0.75 G, QD
     Dates: start: 201901
  6. ISONIAZIDE [Concomitant]
     Active Substance: ISONIAZID
     Indication: TUBERCULOSIS
     Dosage: 0.2 G
     Dates: start: 201901
  7. REDUCED GLUTATHIONE SODIUM [Concomitant]
     Active Substance: GLUTATHIONE
     Indication: HEPATOBILLIARY DISORDER PROPHYLAXIS
     Dosage: 0.4 G, TID
  8. BICYCLOL [Concomitant]
     Active Substance: BICYCLOL
     Indication: HEPATOBILLIARY DISORDER PROPHYLAXIS
     Dosage: 25 MG, TID
  9. MOXIFLOXACIN ORAL [Suspect]
     Active Substance: MOXIFLOXACIN
     Indication: TUBERCULOSIS
     Dosage: 0.4 G, QD
     Dates: start: 201901
  10. RIFAMPICIN [Concomitant]
     Active Substance: RIFAMPIN
     Indication: TUBERCULOSIS
     Dosage: 0.45 G, QD
     Dates: start: 201808

REACTIONS (8)
  - Lymphatic fistula [Recovering/Resolving]
  - Pulmonary tuberculosis [Recovering/Resolving]
  - Contraindicated product administered [None]
  - Drug effective for unapproved indication [None]
  - Off label use [None]
  - Heart rate decreased [None]
  - Product administered to patient of inappropriate age [None]
  - Drug ineffective for unapproved indication [None]

NARRATIVE: CASE EVENT DATE: 2019
